FAERS Safety Report 9210783 (Version 1)
Quarter: 2013Q2

REPORT INFORMATION
  Report Type: Spontaneous
  Country: DK (occurrence: DK)
  Receive Date: 20130404
  Receipt Date: 20130404
  Transmission Date: 20140414
  Serious: Yes (Other)
  Sender: FDA-Public Use
  Company Number: DK-GLAXOSMITHKLINE-B0879990A

PATIENT
  Sex: Female

DRUGS (5)
  1. TYVERB [Suspect]
     Indication: BREAST CANCER METASTATIC
     Route: 065
  2. HERCEPTIN [Suspect]
     Indication: BREAST CANCER METASTATIC
     Route: 065
  3. XELODA [Suspect]
     Indication: BREAST CANCER METASTATIC
     Route: 065
  4. TAXOTERE [Suspect]
     Indication: BREAST CANCER METASTATIC
     Route: 065
  5. NAVELBINE [Suspect]
     Indication: BREAST CANCER METASTATIC
     Route: 065

REACTIONS (1)
  - Disease progression [Not Recovered/Not Resolved]
